FAERS Safety Report 6251769-5 (Version None)
Quarter: 2009Q2

REPORT INFORMATION
  Report Type: 
  Country: None (occurrence: None)
  Receive Date: 20090630
  Receipt Date: 20090623
  Transmission Date: 20091009
  Serious: Yes (Hospitalization, Other)
  Sender: FDA-Public Use
  Company Number: US-AMGEN-US338548

PATIENT
  Sex: Male
  Weight: 79.9 kg

DRUGS (12)
  1. NPLATE [Suspect]
     Indication: IDIOPATHIC THROMBOCYTOPENIC PURPURA
     Route: 058
     Dates: start: 20081017, end: 20081121
  2. CORTICOSTEROIDS [Concomitant]
     Route: 065
  3. RITUXIMAB [Concomitant]
     Route: 065
  4. CAMPATH [Concomitant]
     Route: 065
     Dates: start: 20071127, end: 20080105
  5. TENORMIN [Concomitant]
  6. CAPOTEN [Concomitant]
  7. DIGOXIN [Concomitant]
  8. HEPARIN [Concomitant]
  9. MULTI-VITAMINS [Concomitant]
  10. BACTROBAN [Concomitant]
  11. RISPERDAL [Concomitant]
  12. VANCOMYCIN [Concomitant]

REACTIONS (3)
  - CHRONIC LYMPHOCYTIC LEUKAEMIA RECURRENT [None]
  - FALL [None]
  - ORCHITIS [None]
